FAERS Safety Report 15896961 (Version 1)
Quarter: 2019Q1

REPORT INFORMATION
  Report Type: Spontaneous
  Country: GB (occurrence: GB)
  Receive Date: 20190131
  Receipt Date: 20190131
  Transmission Date: 20190417
  Serious: Yes (Death, Life-Threatening, Other)
  Sender: FDA-Public Use
  Company Number: GB-MALLINCKRODT-T201901333

PATIENT
  Age: 14 Year
  Sex: Male
  Weight: 39 kg

DRUGS (2)
  1. ACDA [Concomitant]
     Indication: ANTICOAGULANT THERAPY
     Dosage: UNK
     Route: 065
  2. UVADEX [Suspect]
     Active Substance: METHOXSALEN
     Indication: GRAFT VERSUS HOST DISEASE
     Dosage: UNK
     Route: 057
     Dates: start: 20190118

REACTIONS (7)
  - Cardiac arrest [Recovered/Resolved]
  - Fungal infection [Unknown]
  - Product use in unapproved indication [Unknown]
  - Sepsis [Unknown]
  - Nervous system disorder [Fatal]
  - Hypoxia [Unknown]
  - Haematocrit decreased [Unknown]

NARRATIVE: CASE EVENT DATE: 201901
